FAERS Safety Report 16036126 (Version 1)
Quarter: 2019Q1

REPORT INFORMATION
  Report Type: Spontaneous
  Country: US (occurrence: US)
  Receive Date: 20190305
  Receipt Date: 20190305
  Transmission Date: 20190418
  Serious: Yes (Other)
  Sender: FDA-Public Use
  Company Number: US-ASTRAZENECA-2019SE33025

PATIENT
  Age: 74 Year
  Sex: Female
  Weight: 183.7 kg

DRUGS (12)
  1. IRON [Concomitant]
     Active Substance: IRON
     Indication: NUTRITIONAL SUPPLEMENTATION
  2. VITAMIN B6 [Concomitant]
     Active Substance: PYRIDOXINE HYDROCHLORIDE
     Indication: ARTHROPATHY
  3. FOLIC ACID. [Concomitant]
     Active Substance: FOLIC ACID
  4. HUMIRA [Suspect]
     Active Substance: ADALIMUMAB
     Indication: CROHN^S DISEASE
     Route: 058
  5. PROBIOTICS [Concomitant]
     Active Substance: PROBIOTICS NOS
  6. AMITRIPTYLINE [Concomitant]
     Active Substance: AMITRIPTYLINE
  7. ZOMIG [Suspect]
     Active Substance: ZOLMITRIPTAN
     Indication: MIGRAINE
     Route: 048
  8. WARFARIN [Concomitant]
     Active Substance: WARFARIN
  9. VITAMIN D3 [Concomitant]
     Active Substance: CHOLECALCIFEROL
  10. NEXIUM [Suspect]
     Active Substance: ESOMEPRAZOLE MAGNESIUM
     Route: 048
  11. ZETIA [Concomitant]
     Active Substance: EZETIMIBE
  12. BONIVA [Concomitant]
     Active Substance: IBANDRONATE SODIUM

REACTIONS (6)
  - Loss of consciousness [Unknown]
  - Gastrooesophageal reflux disease [Unknown]
  - Syncope [Recovered/Resolved]
  - Gastric pH decreased [Not Recovered/Not Resolved]
  - Drug effect decreased [Unknown]
  - Neck pain [Recovered/Resolved]

NARRATIVE: CASE EVENT DATE: 201811
